FAERS Safety Report 8966390 (Version 4)
Quarter: 2013Q3

REPORT INFORMATION
  Report Type: Spontaneous
  Country: US (occurrence: US)
  Receive Date: 20121214
  Receipt Date: 20130822
  Transmission Date: 20140515
  Serious: Yes (Death)
  Sender: FDA-Public Use
  Company Number: US-GLAXOSMITHKLINE-A1005303A

PATIENT
  Age: 88 Year
  Sex: Male

DRUGS (2)
  1. AVANDIA [Suspect]
     Indication: DIABETES MELLITUS
     Route: 048
     Dates: start: 20021001, end: 201007
  2. AVANDAMET [Suspect]
     Indication: DIABETES MELLITUS
     Dates: start: 200704, end: 200912

REACTIONS (3)
  - Cardiac arrest [Fatal]
  - Cardiac failure congestive [Fatal]
  - Anaemia [Unknown]
